FAERS Safety Report 24795813 (Version 2)
Quarter: 2025Q2

REPORT INFORMATION
  Report Type: Spontaneous
  Country: US (occurrence: US)
  Receive Date: 20250101
  Receipt Date: 20250526
  Transmission Date: 20250716
  Serious: No
  Sender: ALEXION PHARMACEUTICALS
  Company Number: US-AstraZeneca-CH-00775958AP

PATIENT

DRUGS (1)
  1. BREZTRI [Suspect]
     Active Substance: BUDESONIDE\FORMOTEROL\GLYCOPYRROLATE

REACTIONS (5)
  - Malaise [Unknown]
  - Nasopharyngitis [Unknown]
  - SARS-CoV-2 antibody test positive [Unknown]
  - Brain fog [Unknown]
  - Product dose omission issue [Unknown]
